FAERS Safety Report 8258452-5 (Version None)
Quarter: 2012Q2

REPORT INFORMATION
  Report Type: 
  Country: None (occurrence: None)
  Receive Date: 20120404
  Receipt Date: 20120327
  Transmission Date: 20120825
  Serious: Yes (Hospitalization, Other)
  Sender: FDA-Public Use
  Company Number: NO-GE HEALTHCARE MEDICAL DIAGNOSTICS-OSCN-NO-0608S-0254

PATIENT
  Sex: Female

DRUGS (10)
  1. OMNISCAN [Suspect]
     Indication: INTERMITTENT CLAUDICATION
     Route: 042
     Dates: start: 20050513, end: 20050513
  2. EPOETIN BETA (NEORECORMON) [Concomitant]
     Indication: NEPHROGENIC ANAEMIA
  3. METOPROLOL SUCCINATE (SELO-ZOK) [Concomitant]
     Indication: HYPERTENSION
     Route: 048
  4. ALFACALCIDOL (ETALPHA) [Concomitant]
     Indication: RENAL FAILURE CHRONIC
     Route: 048
  5. INSULIN HUMAN INJECTION, ISOPHANE (INSULATARD) [Concomitant]
     Indication: DIABETES MELLITUS
     Route: 058
  6. DILTIAZEM (CARDIZEM UNO) [Concomitant]
     Indication: HYPERTENSION
     Route: 048
  7. SODIUM BICARBONATE (NATRON) [Concomitant]
     Indication: RENAL TUBULAR ACIDOSIS
     Route: 048
  8. ZOCOR [Concomitant]
     Indication: HYPERLIPIDAEMIA
     Route: 048
  9. OMNISCAN [Suspect]
     Route: 042
     Dates: start: 20050524, end: 20050524
  10. INSULIN ASPART (NOVORAPID) [Concomitant]
     Indication: DIABETES MELLITUS
     Route: 058

REACTIONS (8)
  - ERYTHEMA [None]
  - OEDEMA PERIPHERAL [None]
  - SKIN HYPERTROPHY [None]
  - PAIN IN EXTREMITY [None]
  - RENAL FAILURE ACUTE [None]
  - NEPHROGENIC SYSTEMIC FIBROSIS [None]
  - SKIN DISCOLOURATION [None]
  - SKIN FIBROSIS [None]
